FAERS Safety Report 15980866 (Version 1)
Quarter: 2019Q1

REPORT INFORMATION
  Report Type: Spontaneous
  Country: FI (occurrence: FI)
  Receive Date: 20190219
  Receipt Date: 20190219
  Transmission Date: 20190418
  Serious: Yes (Hospitalization, Other)
  Sender: FDA-Public Use
  Company Number: FI-MYLANLABS-2019M1015154

PATIENT
  Age: 17 Year
  Sex: Male

DRUGS (8)
  1. PIPERIDINE [Concomitant]
     Active Substance: PIPERIDINE
     Indication: PRODUCT USED FOR UNKNOWN INDICATION
     Route: 065
  2. QUETIAPINE. [Suspect]
     Active Substance: QUETIAPINE
     Indication: AUTISM SPECTRUM DISORDER
     Dosage: 150-200MG
     Route: 065
  3. RISPERIDONE. [Suspect]
     Active Substance: RISPERIDONE
     Dosage: 4.5 MILLIGRAM, QD
     Route: 065
  4. RISPERIDONE. [Suspect]
     Active Substance: RISPERIDONE
     Indication: AUTISM SPECTRUM DISORDER
     Dosage: 0.25 MILLIGRAM, QD
     Route: 065
  5. RISPERIDONE. [Suspect]
     Active Substance: RISPERIDONE
     Dosage: 3 MILLIGRAM, QD
     Route: 065
  6. RISPERIDONE. [Suspect]
     Active Substance: RISPERIDONE
     Dosage: 0.4 MILLIGRAM, QD
     Route: 065
  7. VALPROATE [Concomitant]
     Active Substance: VALPROIC ACID
     Indication: EPILEPSY
     Dosage: 600-1000MG
     Route: 065
  8. LEVOMEPROMAZINE [Concomitant]
     Active Substance: LEVOMEPROMAZINE
     Indication: AGGRESSION
     Route: 065

REACTIONS (10)
  - Eating disorder [Recovered/Resolved]
  - Tic [Unknown]
  - Skin laceration [Unknown]
  - Wound infection [Unknown]
  - Sepsis [Unknown]
  - Weight decreased [Unknown]
  - Intentional self-injury [Recovered/Resolved]
  - Tardive dyskinesia [Recovered/Resolved]
  - Insomnia [Unknown]
  - Sedation [Unknown]
